FAERS Safety Report 18420172 (Version 4)
Quarter: 2025Q3

REPORT INFORMATION
  Report Type: Spontaneous
  Country: EU (occurrence: EU)
  Receive Date: 20201023
  Receipt Date: 20250720
  Transmission Date: 20251021
  Serious: Yes (Hospitalization, Other)
  Sender: AUROBINDO
  Company Number: EU-LFM-200224

PATIENT
  Age: 80 Year
  Sex: Female

DRUGS (12)
  1. DOXAZOSIN [Suspect]
     Active Substance: DOXAZOSIN MESYLATE
     Indication: Product used for unknown indication
     Route: 065
  2. PANTOPRAZOLE [Suspect]
     Active Substance: PANTOPRAZOLE
     Indication: Product used for unknown indication
     Route: 065
  3. SIMVASTATIN [Suspect]
     Active Substance: SIMVASTATIN
     Indication: Product used for unknown indication
     Route: 065
  4. ASPIRIN [Suspect]
     Active Substance: ASPIRIN
     Indication: Product used for unknown indication
     Route: 065
  5. FLUCONAZOLE [Suspect]
     Active Substance: FLUCONAZOLE
     Indication: Product used for unknown indication
     Route: 065
  6. METHOTREXATE [Suspect]
     Active Substance: METHOTREXATE
     Indication: Product used for unknown indication
     Route: 058
  7. AMOXICILLIN\CLAVULANIC ACID [Suspect]
     Active Substance: AMOXICILLIN\CLAVULANIC ACID
     Indication: Product used for unknown indication
     Route: 048
  8. TELMISARTAN [Suspect]
     Active Substance: TELMISARTAN
     Indication: Ill-defined disorder
     Route: 065
  9. INSULIN NOS [Suspect]
     Active Substance: INSULIN NOS
     Indication: Type 2 diabetes mellitus
     Route: 065
  10. LINAGLIPTIN [Suspect]
     Active Substance: LINAGLIPTIN
     Indication: Type 2 diabetes mellitus
     Route: 065
  11. WARFARIN [Suspect]
     Active Substance: WARFARIN
     Indication: Product used for unknown indication
     Route: 065
  12. NYSTATIN [Concomitant]
     Active Substance: NYSTATIN
     Indication: Product used for unknown indication
     Route: 061

REACTIONS (6)
  - Pemphigoid [Recovered/Resolved]
  - Agranulocytosis [Unknown]
  - Pruritus [Recovered/Resolved]
  - Pleural effusion [Unknown]
  - Oral candidiasis [Unknown]
  - Pyrexia [Unknown]
